FAERS Safety Report 6389662-X (Version None)
Quarter: 2009Q4

REPORT INFORMATION
  Report Type: 
  Country: None (occurrence: None)
  Receive Date: 20091006
  Receipt Date: 20090929
  Transmission Date: 20100525
  Serious: Yes (Death)
  Sender: FDA-Public Use
  Company Number: KR-BRISTOL-MYERS SQUIBB COMPANY-14800841

PATIENT
  Age: 70 Year
  Sex: Male
  Weight: 68 kg

DRUGS (20)
  1. CISPLATIN [Suspect]
     Indication: GASTRIC CANCER
     Route: 042
     Dates: start: 20090415, end: 20090415
  2. AXITINIB [Suspect]
     Indication: GASTRIC CANCER
     Dosage: LAST DOSE ON 29-APR-2009
     Route: 048
     Dates: start: 20090415
  3. CAPECITABINE [Suspect]
     Indication: GASTRIC CANCER
     Dosage: DAY 1 TO DAY 14 EVERY 21 DAYS, LAST DOSE ON 28-APR-2009
     Route: 048
     Dates: start: 20090415
  4. ASPIRIN [Concomitant]
     Indication: ANTIPLATELET THERAPY
     Dates: start: 19980101
  5. BACLOFEN [Concomitant]
     Indication: HICCUPS
     Dates: start: 20090420
  6. HEDERA HELIX [Concomitant]
     Indication: COUGH
     Dates: start: 20090411, end: 20090415
  7. COZAAR [Concomitant]
     Indication: HYPERTENSION
     Dates: start: 19990101
  8. CRESTOR [Concomitant]
     Indication: HYPERLIPIDAEMIA
     Dates: start: 19990101
  9. DILATREND [Concomitant]
     Indication: HYPERTENSION
     Dates: start: 20090414
  10. DEXAMETHASONE 4MG TAB [Concomitant]
     Indication: PREMEDICATION
     Dates: start: 20090415, end: 20090418
  11. LEVOSULPIRIDE [Concomitant]
     Indication: DYSPEPSIA
     Dates: start: 20090101, end: 20090414
  12. MEGESTROL ACETATE [Concomitant]
     Indication: DECREASED APPETITE
     Dates: start: 20090422
  13. MAXOLON [Concomitant]
     Indication: NAUSEA
     Dates: start: 20090415
  14. ACETYLCYSTEINE [Concomitant]
     Indication: PRODUCTIVE COUGH
     Dates: start: 20090413, end: 20090414
  15. MONILAC [Concomitant]
     Indication: CONSTIPATION
     Dates: start: 20090411
  16. PARIET [Concomitant]
     Indication: DYSPEPSIA
     Dates: start: 20090408
  17. REBAMIPIDE [Concomitant]
     Indication: DYSPEPSIA
     Dates: start: 20090407, end: 20090414
  18. ULCERMIN [Concomitant]
     Indication: DYSPEPSIA
     Dates: start: 20090422
  19. ALOXI [Concomitant]
     Indication: NAUSEA
     Dates: start: 20090415, end: 20090415
  20. MANNITOL [Concomitant]
     Indication: PREMEDICATION
     Dates: start: 20090415, end: 20090415

REACTIONS (2)
  - AORTIC ANEURYSM RUPTURE [None]
  - HYPERTENSION [None]
